FAERS Safety Report 8521356-4 (Version None)
Quarter: 2012Q3

REPORT INFORMATION
  Report Type: 
  Country: None (occurrence: None)
  Receive Date: 20120719
  Receipt Date: 20120710
  Transmission Date: 20120928
  Serious: Yes (Hospitalization)
  Sender: FDA-Public Use
  Company Number: DE-ASTRAZENECA-2012SE47323

PATIENT
  Sex: Male

DRUGS (3)
  1. BETA BLOCKER [Concomitant]
  2. BRILINTA [Suspect]
     Indication: INFARCTION
     Route: 048
     Dates: start: 20120501
  3. BRILINTA [Suspect]
     Route: 048
     Dates: end: 20120701

REACTIONS (2)
  - INTENTIONAL DRUG MISUSE [None]
  - BRADYCARDIA [None]
